FAERS Safety Report 8796909 (Version 2)
Quarter: 2012Q4

REPORT INFORMATION
  Report Type: 
  Country: FR (occurrence: FR)
  Receive Date: 20120920
  Receipt Date: 20121129
  Transmission Date: 20130627
  Serious: Yes (Other)
  Sender: FDA-Public Use
  Company Number: PHHY2012FR080974

PATIENT
  Age: 67 Year
  Sex: Male

DRUGS (3)
  1. ZOMETA [Suspect]
     Indication: HYPERCALCAEMIA
     Dosage: 4 mg, UNK
     Route: 042
     Dates: start: 20120909
  2. PAMIDRONATE [Suspect]
     Dosage: 60 mg, each day
     Dates: start: 20120829
  3. PAMIDRONATE [Suspect]
     Dosage: 60 mg, each day
     Dates: start: 20120906

REACTIONS (3)
  - Hypercalcaemia [Unknown]
  - Confusional state [Unknown]
  - Malaise [Unknown]
